FAERS Safety Report 7562488-7 (Version None)
Quarter: 2011Q2

REPORT INFORMATION
  Report Type: 
  Country: None (occurrence: None)
  Receive Date: 20110622
  Receipt Date: 20110617
  Transmission Date: 20111010
  Serious: Yes (Hospitalization)
  Sender: FDA-Public Use
  Company Number: GB-SANOFI-AVENTIS-2011SA036009

PATIENT
  Age: 74 Year
  Sex: Female

DRUGS (7)
  1. ETORICOXIB [Suspect]
     Indication: OSTEOARTHRITIS
     Route: 048
     Dates: end: 20110514
  2. ENOXAPARIN SODIUM [Suspect]
     Indication: THROMBOSIS PROPHYLAXIS
     Route: 058
     Dates: start: 20110502, end: 20110514
  3. IBUPROFEN [Suspect]
     Route: 048
  4. ALENDRONATE SODIUM [Concomitant]
  5. CALCICHEW D3 [Concomitant]
  6. LEVOTHYROXINE SODIUM [Concomitant]
  7. ACETAMINOPHEN [Concomitant]
     Dates: start: 20110502

REACTIONS (3)
  - MELAENA [None]
  - DUODENAL ULCER [None]
  - HAEMOGLOBIN DECREASED [None]
